FAERS Safety Report 7236589-7 (Version None)
Quarter: 2011Q1

REPORT INFORMATION
  Report Type: 
  Country: None (occurrence: None)
  Receive Date: 20110120
  Receipt Date: 20110118
  Transmission Date: 20110831
  Serious: Yes (Hospitalization)
  Sender: FDA-Public Use
  Company Number: CA-ABBOTT-10P-028-0679087-00

PATIENT
  Sex: Male
  Weight: 104.42 kg

DRUGS (5)
  1. HUMIRA [Suspect]
  2. METFORMIN [Concomitant]
     Indication: DIABETES MELLITUS
     Dosage: QID
  3. GLYBURIDE [Concomitant]
     Indication: DIABETES MELLITUS
     Dosage: QID
  4. HUMIRA [Suspect]
     Indication: CROHN'S DISEASE
     Route: 058
     Dates: start: 20100727, end: 20100824
  5. ASACOL [Concomitant]
     Indication: CROHN'S DISEASE
     Dosage: TIC

REACTIONS (10)
  - CROHN'S DISEASE [None]
  - FREQUENT BOWEL MOVEMENTS [None]
  - NAUSEA [None]
  - BLOOD GLUCOSE FLUCTUATION [None]
  - MUSCULOSKELETAL PAIN [None]
  - NECK PAIN [None]
  - URINARY TRACT INFECTION [None]
  - CYSTITIS [None]
  - PAIN [None]
  - ABDOMINAL PAIN LOWER [None]
